FAERS Safety Report 24031404 (Version 3)
Quarter: 2025Q3

REPORT INFORMATION
  Report Type: Spontaneous
  Country: US (occurrence: US)
  Receive Date: 20240629
  Receipt Date: 20250811
  Transmission Date: 20251020
  Serious: Yes (Life-Threatening, Hospitalization, Other)
  Sender: CIPLA
  Company Number: US-MLMSERVICE-20240412-PI024191-00312-1

PATIENT

DRUGS (1)
  1. TESTOSTERONE [Suspect]
     Active Substance: TESTOSTERONE
     Indication: Product used for unknown indication
     Route: 030

REACTIONS (5)
  - Pulmonary hypertension [Unknown]
  - Oestradiol increased [Unknown]
  - Left ventricular failure [Unknown]
  - Pulmonary embolism [Unknown]
  - Blood testosterone increased [Unknown]
